FAERS Safety Report 5610962-2 (Version None)
Quarter: 2008Q1

REPORT INFORMATION
  Report Type: 
  Country: None (occurrence: None)
  Receive Date: 20080201
  Receipt Date: 20071213
  Transmission Date: 20080703
  Serious: Yes (Hospitalization)
  Sender: FDA-Public Use
  Company Number: US-BAYER-200810075GPV

PATIENT
  Age: 80 Year
  Sex: Female
  Weight: 74 kg

DRUGS (16)
  1. VEGF TRAP-EYE (INJECTION) (VEGF TRAP) [Suspect]
     Indication: MACULAR DEGENERATION
     Route: 031
     Dates: start: 20070517
  2. ASPIRIN [Suspect]
     Indication: NASOPHARYNGITIS
     Route: 048
     Dates: start: 20070101
  3. CORTISONE INJECTIONS [Suspect]
     Indication: MYALGIA
     Route: 030
  4. DIOVAN [Concomitant]
     Indication: HYPERTENSION
     Dates: start: 20060101
  5. SULAR [Concomitant]
     Indication: HYPERTENSION
     Route: 048
     Dates: start: 20020101
  6. FOSAMAX PLUS(TABLETS) [Concomitant]
     Indication: OSTEOPOROSIS PROPHYLAXIS
     Route: 048
     Dates: start: 20070101
  7. ASACOL [Concomitant]
     Indication: COLITIS
     Route: 048
     Dates: start: 20060101
  8. CALCIUM GLUCONATE [Concomitant]
     Indication: MEDICAL DIET
     Route: 048
     Dates: start: 20020101
  9. MULTIVITAMIN(TABLETS) [Concomitant]
     Indication: MEDICAL DIET
     Route: 048
     Dates: start: 19970101
  10. DIGESTIVE ADVANTAGE (TABLETS) [Concomitant]
     Indication: IRRITABLE BOWEL SYNDROME
     Route: 048
     Dates: start: 20070101
  11. TROPICAMIDE [Concomitant]
     Indication: MYDRIASIS
     Route: 047
     Dates: start: 20070101
  12. PROPARACAINE 0.5% [Concomitant]
     Indication: APPLICATION SITE ANAESTHESIA
     Route: 047
     Dates: start: 20070101
  13. PHENYLEPHRINE 2.5% [Concomitant]
     Indication: MYDRIASIS
     Route: 047
     Dates: start: 20070101
  14. BETADINE 5% [Concomitant]
     Indication: INFECTION PROPHYLAXIS
     Route: 047
     Dates: start: 20070101
  15. KLOR-CON [Concomitant]
     Indication: BLOOD POTASSIUM DECREASED
     Dates: start: 20070101
  16. FLAGYL [Concomitant]
     Indication: FLATULENCE
     Route: 048
     Dates: start: 20070101

REACTIONS (3)
  - ABDOMINAL PAIN [None]
  - ERUCTATION [None]
  - VERTIGO [None]
